FAERS Safety Report 26090328 (Version 1)
Quarter: 2025Q4

REPORT INFORMATION
  Report Type: Spontaneous
  Country: EU (occurrence: EU)
  Receive Date: 20251126
  Receipt Date: 20251126
  Transmission Date: 20260118
  Serious: Yes (Hospitalization, Other)
  Sender: SANDOZ
  Company Number: EU-ABBVIE-17K-062-2195245-00

PATIENT
  Sex: Female
  Weight: 70 kg

DRUGS (33)
  1. FLUTICASONE PROPIONATE\SALMETEROL XINAFOATE [Suspect]
     Active Substance: FLUTICASONE PROPIONATE\SALMETEROL XINAFOATE
     Indication: Product used for unknown indication
     Dosage: 2 DF, QD
     Route: 065
  2. FLUTICASONE PROPIONATE\SALMETEROL XINAFOATE [Suspect]
     Active Substance: FLUTICASONE PROPIONATE\SALMETEROL XINAFOATE
     Dosage: 1 OT, QD
     Route: 065
  3. FLUTICASONE PROPIONATE\SALMETEROL XINAFOATE [Suspect]
     Active Substance: FLUTICASONE PROPIONATE\SALMETEROL XINAFOATE
     Indication: Product used for unknown indication
     Dosage: UNK
     Route: 055
     Dates: start: 20170715
  4. AMJEVITA [Suspect]
     Active Substance: ADALIMUMAB-ATTO
     Indication: Psoriasis
     Dosage: 40 MG
     Route: 065
     Dates: start: 20190626
  5. AMJEVITA [Suspect]
     Active Substance: ADALIMUMAB-ATTO
     Indication: Psoriatic arthropathy
     Dosage: UNK
     Route: 065
  6. HUMIRA [Suspect]
     Active Substance: ADALIMUMAB
     Indication: Psoriatic arthropathy
     Dosage: 1 DF, Q4W
     Route: 058
     Dates: start: 2018, end: 20180218
  7. HUMIRA [Suspect]
     Active Substance: ADALIMUMAB
     Dosage: 40 MG, Q4W
     Route: 058
     Dates: start: 20180415, end: 20190218
  8. HUMIRA [Suspect]
     Active Substance: ADALIMUMAB
     Indication: Psoriasis
     Dosage: 40 MG, Q2W
     Route: 058
     Dates: start: 20170629
  9. HUMIRA [Suspect]
     Active Substance: ADALIMUMAB
     Dosage: UNK
     Route: 058
     Dates: start: 2019, end: 20190625
  10. LEVOTHYROXINE SODIUM [Suspect]
     Active Substance: LEVOTHYROXINE SODIUM
     Indication: Hypothyroidism
     Dosage: 100 UG, UNK
     Route: 048
  11. LEVOTHYROXINE SODIUM [Suspect]
     Active Substance: LEVOTHYROXINE SODIUM
     Indication: Product used for unknown indication
  12. ALBUTEROL [Suspect]
     Active Substance: ALBUTEROL
     Dosage: 5 ML, BEFORE LEVOFLOXACIN INHALATION
     Route: 055
  13. ALBUTEROL [Suspect]
     Active Substance: ALBUTEROL
     Dosage: 5 ML, BEFORE LEVOFLOXACIN INHALATION
     Route: 055
  14. ALBUTEROL [Suspect]
     Active Substance: ALBUTEROL
     Indication: Product used for unknown indication
     Dosage: 5 ML, PRN (BEFORE LEVOFLOXACIN INHALATION)
     Route: 055
  15. ALBUTEROL [Suspect]
     Active Substance: ALBUTEROL
     Indication: Product used for unknown indication
     Dosage: UNK
     Route: 055
  16. FLUTICASONE PROPIONATE\SALMETEROL XINAFOATE [Concomitant]
     Active Substance: FLUTICASONE PROPIONATE\SALMETEROL XINAFOATE
     Dosage: DOSE 1, 2 OT
     Route: 065
  17. FLUTICASONE PROPIONATE\SALMETEROL XINAFOATE [Concomitant]
     Active Substance: FLUTICASONE PROPIONATE\SALMETEROL XINAFOATE
     Indication: Product used for unknown indication
     Dosage: DOSE 2
     Route: 065
  18. Emser sole [Concomitant]
     Indication: Product used for unknown indication
     Dosage: AS REQUIRED 3 TIMES A DAY
     Route: 065
  19. Emser sole [Concomitant]
     Indication: Asthma
  20. FLUTICASONE [Concomitant]
     Active Substance: FLUTICASONE
     Indication: Product used for unknown indication
     Dosage: 2 DF
     Route: 045
  21. FLUTICASONE [Concomitant]
     Active Substance: FLUTICASONE
     Indication: Product used for unknown indication
     Dosage: 2 OT, QD
     Route: 045
  22. FLUTICASONE [Concomitant]
     Active Substance: FLUTICASONE
     Indication: Asthma
     Dosage: 2 UNK, QD
     Route: 045
  23. FLUTICASONE [Concomitant]
     Active Substance: FLUTICASONE
     Dosage: 2 UNK, QD
     Route: 045
  24. FLUTICASONE [Concomitant]
     Active Substance: FLUTICASONE
     Dosage: UNK UNK, QD
     Route: 045
  25. LEVOTHYROXINE SODIUM [Concomitant]
     Active Substance: LEVOTHYROXINE SODIUM
     Indication: Product used for unknown indication
     Dosage: 1 OT, QD
     Route: 048
  26. LEVOTHYROXINE SODIUM [Concomitant]
     Active Substance: LEVOTHYROXINE SODIUM
     Dosage: UNK UNK, QD
     Route: 065
  27. LEVOTHYROXINE SODIUM [Concomitant]
     Active Substance: LEVOTHYROXINE SODIUM
     Dosage: UNK UNK, QD
     Route: 065
  28. LEVOTHYROXINE [Concomitant]
     Active Substance: LEVOTHYROXINE
     Indication: Product used for unknown indication
     Dosage: 125 MG, QD
     Route: 065
  29. ALBUTEROL [Concomitant]
     Active Substance: ALBUTEROL
     Indication: Product used for unknown indication
     Dosage: UNK
     Route: 055
  30. FLUTICASONE PROPIONATE\SALMETEROL XINAFOATE [Concomitant]
     Active Substance: FLUTICASONE PROPIONATE\SALMETEROL XINAFOATE
     Indication: Product used for unknown indication
     Dosage: 2 OT, QD (50/100 UG FOLLOWING DISCUSSION)
     Route: 055
  31. FLUTICASONE PROPIONATE\SALMETEROL XINAFOATE [Concomitant]
     Active Substance: FLUTICASONE PROPIONATE\SALMETEROL XINAFOATE
     Indication: Asthma
     Dosage: 50/100 UG FOLLOWING DISCUSSION
     Route: 055
  32. FLUTICASONE PROPIONATE\SALMETEROL XINAFOATE [Concomitant]
     Active Substance: FLUTICASONE PROPIONATE\SALMETEROL XINAFOATE
     Dosage: 50/100 UG FOLLOWING DISCUSSION
     Route: 055
  33. FLUTICASONE PROPIONATE\SALMETEROL XINAFOATE [Concomitant]
     Active Substance: FLUTICASONE PROPIONATE\SALMETEROL XINAFOATE
     Dosage: 50/100 UG FOLLOWING DISCUSSION
     Route: 055

REACTIONS (56)
  - Immunodeficiency [Unknown]
  - Lung disorder [Not Recovered/Not Resolved]
  - Chronic sinusitis [Unknown]
  - Tracheobronchitis bacterial [Recovered/Resolved]
  - Bronchitis bacterial [Unknown]
  - Bronchitis [Unknown]
  - Osteomyelitis [Recovered/Resolved]
  - Traumatic lung injury [Unknown]
  - Bronchial obstruction [Unknown]
  - Increased upper airway secretion [Unknown]
  - Inflammation [Unknown]
  - Breath sounds abnormal [Unknown]
  - Pneumonia [Recovered/Resolved]
  - Hyperthyroidism [Unknown]
  - Mucosal haemorrhage [Unknown]
  - Pneumonia [Unknown]
  - Staphylococcal infection [Unknown]
  - Hiatus hernia [Recovered/Resolved]
  - Infection susceptibility increased [Unknown]
  - Haemoptysis [Not Recovered/Not Resolved]
  - Pulmonary fibrosis [Not Recovered/Not Resolved]
  - Magnetic resonance imaging thoracic abnormal [Unknown]
  - Tracheobronchitis [Unknown]
  - Bronchial wall thickening [Unknown]
  - Haemoptysis [Unknown]
  - Haemophilus infection [Recovering/Resolving]
  - Conjunctivitis allergic [Unknown]
  - Bronchiectasis [Unknown]
  - Pulmonary haemorrhage [Unknown]
  - Breath sounds abnormal [Unknown]
  - Dyspnoea [Unknown]
  - Hilar lymphadenopathy [Unknown]
  - Bronchiolitis [Unknown]
  - Pneumonia [Unknown]
  - Haemoptysis [Unknown]
  - Asthma [Unknown]
  - Obstructive airways disorder [Unknown]
  - Dyspnoea [Unknown]
  - Cystitis noninfective [Unknown]
  - Pulmonary oedema [Unknown]
  - Blood immunoglobulin E increased [Unknown]
  - Drug intolerance [Unknown]
  - Respiratory tract infection [Recovered/Resolved]
  - Thyroid atrophy [Unknown]
  - Osteochondrosis [Not Recovered/Not Resolved]
  - Immunodeficiency [Not Recovered/Not Resolved]
  - Inflammation [Unknown]
  - Tracheobronchitis [Unknown]
  - Lung disorder [Unknown]
  - Pneumonia [Unknown]
  - Hiatus hernia [Unknown]
  - Haemoptysis [Unknown]
  - Haemophilus infection [Unknown]
  - Osteomyelitis [Unknown]
  - Pneumonia [Unknown]
  - Hyperthyroidism [Unknown]

NARRATIVE: CASE EVENT DATE: 20170101
